FAERS Safety Report 24164137 (Version 1)
Quarter: 2024Q3

REPORT INFORMATION
  Report Type: Spontaneous
  Country: US (occurrence: US)
  Receive Date: 20240801
  Receipt Date: 20240801
  Transmission Date: 20241016
  Serious: No
  Sender: GE HEALTHCARE
  Company Number: US-GE HEALTHCARE-2024CSU004887

PATIENT
  Age: 18 Year
  Sex: Male
  Weight: 65.76 kg

DRUGS (1)
  1. CLARISCAN [Suspect]
     Active Substance: GADOTERATE MEGLUMINE
     Indication: Magnetic resonance imaging abdominal
     Dosage: 14 ML, TOTAL
     Route: 042
     Dates: start: 20231222, end: 20231222

REACTIONS (3)
  - Contrast media allergy [Recovered/Resolved]
  - Eye pruritus [Recovered/Resolved]
  - Swelling of eyelid [Recovered/Resolved]

NARRATIVE: CASE EVENT DATE: 20231222
